FAERS Safety Report 8123956-2 (Version None)
Quarter: 2012Q1

REPORT INFORMATION
  Report Type: 
  Country: None (occurrence: None)
  Receive Date: 20120209
  Receipt Date: 20120206
  Transmission Date: 20120608
  Serious: Yes (Other)
  Sender: FDA-Public Use
  Company Number: US-JNJFOC-20120203441

PATIENT
  Age: 60 Year
  Sex: Male

DRUGS (13)
  1. COUMADIN [Concomitant]
     Indication: ANTICOAGULANT THERAPY
     Route: 065
  2. BENADRYL [Suspect]
     Indication: HYPERSENSITIVITY
     Dosage: TWO LIQUIGELS
     Route: 048
     Dates: start: 20120130, end: 20120130
  3. BENAZEPRIL HYDROCHLORIDE [Concomitant]
     Indication: HYPERTENSION
     Route: 065
  4. LEVOXYL [Concomitant]
     Indication: THYROID DISORDER
     Dosage: 0.137 MCG
     Route: 065
  5. LORAZEPAM [Concomitant]
     Indication: ANXIETY
     Dosage: TWO TO THREE TIMES DAILY
     Route: 065
  6. TRAMADOL HCL [Concomitant]
     Indication: MYALGIA
     Dosage: UP TO FOUR TIMES
     Route: 065
  7. ACETAMINOPHEN [Concomitant]
     Indication: PAIN
     Dosage: UP TO FOUR TIMES
     Route: 065
  8. TRIAMTERENE AND HYDROCHLOROTHIAZIDE [Concomitant]
     Indication: DIURETIC THERAPY
     Dosage: 37.5 MG / 25 MG
     Route: 065
  9. TRAMADOL HCL [Concomitant]
     Indication: ARTHRITIS
     Dosage: UP TO FOUR TIMES
     Route: 065
  10. NEXIUM [Concomitant]
     Indication: GASTROOESOPHAGEAL REFLUX DISEASE
     Route: 065
  11. RANITIDINE [Concomitant]
     Indication: GASTROOESOPHAGEAL REFLUX DISEASE
     Route: 065
  12. BENADRYL [Suspect]
     Indication: SINUS DISORDER
     Dosage: TWO LIQUIGELS
     Route: 048
     Dates: start: 20120130, end: 20120130
  13. VERAPAMIL [Concomitant]
     Indication: CARDIAC DISORDER
     Route: 065

REACTIONS (10)
  - FEELING OF BODY TEMPERATURE CHANGE [None]
  - MUSCLE SPASMS [None]
  - FEELING ABNORMAL [None]
  - LOSS OF CONSCIOUSNESS [None]
  - ASTHENIA [None]
  - VOMITING [None]
  - HALLUCINATION [None]
  - HEADACHE [None]
  - PAIN [None]
  - NAUSEA [None]
